FAERS Safety Report 9012353 (Version 2)
Quarter: 2013Q2

REPORT INFORMATION
  Report Type: Spontaneous
  Country: US (occurrence: None)
  Receive Date: 20120518
  Receipt Date: 20120820
  Transmission Date: 20140414
  Serious: No
  Sender: FDA-Public Use
  Company Number: 1000029865

PATIENT
  Age: 58 Year
  Sex: Female

DRUGS (7)
  1. VIIBRYD (VILAZODONE) [Suspect]
     Indication: DEPRESSION
     Route: 048
     Dates: start: 20120323, end: 20120412
  2. KLONOPIN [Concomitant]
  3. DOXAZOSIS (DOXAZOSIN) (DOXAZOSIN) [Concomitant]
  4. CRESTOR (ROSUVASTATIN CALCIUM) (ROSUVASTATIN CALCIUM) [Concomitant]
  5. HUMALOG (INSULIN LISPRO) (INSULIN LISPRO) [Concomitant]
  6. LANTUS (INSULIN GLARGINE)(INSULIN GLARGINE) [Concomitant]
  7. LISINOPRIL (LISINOPRIL)(LISINOPRIL) [Concomitant]

REACTIONS (6)
  - Fatigue [None]
  - Headache [None]
  - Abnormal dreams [None]
  - Insomnia [None]
  - Fear [None]
  - Somnolence [None]
